FAERS Safety Report 10199844 (Version 1)
Quarter: 2014Q2

REPORT INFORMATION
  Report Type: Spontaneous
  Country: US (occurrence: US)
  Receive Date: 20140527
  Receipt Date: 20140527
  Transmission Date: 20141212
  Serious: No
  Sender: FDA-Public Use
  Company Number: US-ENDO PHARMACEUTICALS INC.-GILD20130029

PATIENT
  Age: 27 Year
  Sex: Female
  Weight: 81.72 kg

DRUGS (2)
  1. GILDESS FE 1/20 [Suspect]
     Indication: CONTRACEPTION
     Dosage: 1/20
     Route: 048
     Dates: start: 20131103
  2. TRAMADOL [Concomitant]
     Indication: PRODUCT USED FOR UNKNOWN INDICATION
     Dosage: UNKNOWN
     Route: 048

REACTIONS (3)
  - Influenza like illness [Unknown]
  - Vomiting [Unknown]
  - Abdominal pain [Unknown]
